FAERS Safety Report 10568312 (Version 1)
Quarter: 2014Q4

REPORT INFORMATION
  Report Type: Report from Study
  Country: DE (occurrence: DE)
  Receive Date: 20141106
  Receipt Date: 20141106
  Transmission Date: 20150529
  Serious: Yes (Death)
  Sender: FDA-Public Use
  Company Number: DE-BAYER-2014-160069

PATIENT

DRUGS (1)
  1. BETAFERON [Suspect]
     Active Substance: INTERFERON BETA-1B
     Dosage: UNK
     Route: 064
     Dates: end: 20140929

REACTIONS (2)
  - Foetal heart rate abnormal [Fatal]
  - Foetal exposure during pregnancy [None]
